FAERS Safety Report 16304239 (Version 1)
Quarter: 2019Q2

REPORT INFORMATION
  Report Type: Spontaneous
  Country: FR (occurrence: FR)
  Receive Date: 20190513
  Receipt Date: 20190513
  Transmission Date: 20190711
  Serious: Yes (Death)
  Sender: FDA-Public Use
  Company Number: FR-GLAXOSMITHKLINE-FR2019GSK083436

PATIENT
  Age: 41 Year
  Sex: Male

DRUGS (2)
  1. NICOTINE. [Suspect]
     Active Substance: NICOTINE
     Indication: PRODUCT USED FOR UNKNOWN INDICATION
     Dosage: UNK
     Route: 062
  2. NICOTINE. [Suspect]
     Active Substance: NICOTINE
     Dosage: UNK, 1.5 MG CAPSULES, 5 BLISTERS; UNKNOWN

REACTIONS (1)
  - Tobacco poisoning [Fatal]
